FAERS Safety Report 8346716-6 (Version None)
Quarter: 2012Q2

REPORT INFORMATION
  Report Type: 
  Country: None (occurrence: None)
  Receive Date: 20120509
  Receipt Date: 20120426
  Transmission Date: 20120825
  Serious: Yes (Life-Threatening, Other)
  Sender: FDA-Public Use
  Company Number: GB-AMGEN-GBRSP2012016871

PATIENT
  Age: 61 Year
  Sex: Male
  Weight: 80 kg

DRUGS (6)
  1. BENDROFLUAZIDE [Concomitant]
     Dosage: 2.5 UNK, 1X/DAY
  2. AMITRIPTYLINE HCL [Concomitant]
     Dosage: 100 (UNK)
  3. INSULIN [Concomitant]
  4. CLOPIDOGREL [Concomitant]
     Dosage: 75 UNK, 1X/DAY
  5. TRAMADOL HYDROCHLORIDE [Concomitant]
     Dosage: UNK
  6. ENBREL [Suspect]
     Indication: ANKYLOSING SPONDYLITIS
     Dosage: 50 MG, WEEKLY
     Route: 058
     Dates: start: 20090101, end: 20120201

REACTIONS (1)
  - PANCREATITIS RELAPSING [None]
